FAERS Safety Report 19841553 (Version 1)
Quarter: 2021Q3

REPORT INFORMATION
  Report Type: Report from Study
  Country: FR (occurrence: FR)
  Receive Date: 20210915
  Receipt Date: 20210915
  Transmission Date: 20211014
  Serious: Yes (Hospitalization)
  Sender: FDA-Public Use
  Company Number: FR-CELGENEUS-FRA-20210702707

PATIENT
  Age: 62 Year
  Sex: Male

DRUGS (30)
  1. REVLIMID [Suspect]
     Active Substance: LENALIDOMIDE
     Dosage: 25 MILLIGRAM
     Route: 048
     Dates: start: 20210203, end: 20210223
  2. REVLIMID [Suspect]
     Active Substance: LENALIDOMIDE
     Dosage: 25 MILLIGRAM
     Route: 048
     Dates: start: 20210511, end: 20210531
  3. DEXAMETHASONE. [Suspect]
     Active Substance: DEXAMETHASONE
     Indication: PLASMA CELL MYELOMA
     Dosage: 20 MILLIGRAM
     Route: 048
     Dates: start: 20201209, end: 20201210
  4. DEXAMETHASONE. [Suspect]
     Active Substance: DEXAMETHASONE
     Dosage: 20 MILLIGRAM
     Route: 048
     Dates: start: 20210416, end: 20210430
  5. KYPROLIS [Suspect]
     Active Substance: CARFILZOMIB
     Dosage: 72 MILLIGRAM
     Route: 042
     Dates: start: 20210422, end: 20210430
  6. DARZALEX [Suspect]
     Active Substance: DARATUMUMAB
     Indication: PLASMA CELL MYELOMA
     Route: 042
     Dates: start: 20201209, end: 20201210
  7. DARZALEX [Suspect]
     Active Substance: DARATUMUMAB
     Dosage: 1552 MILLIGRAM
     Route: 042
     Dates: start: 20210203, end: 20210217
  8. REVLIMID [Suspect]
     Active Substance: LENALIDOMIDE
     Dosage: 25 MILLIGRAM
     Route: 048
     Dates: start: 20210106, end: 20210126
  9. DEXAMETHASONE. [Suspect]
     Active Substance: DEXAMETHASONE
     Route: 048
     Dates: start: 20210610, end: 20210708
  10. KYPROLIS [Suspect]
     Active Substance: CARFILZOMIB
     Dosage: 77.8 MILLIGRAM
     Route: 042
     Dates: start: 20210203, end: 20210218
  11. KYPROLIS [Suspect]
     Active Substance: CARFILZOMIB
     Dosage: 77.8 MILLIGRAM
     Route: 042
     Dates: start: 20210416, end: 20210417
  12. DARZALEX [Suspect]
     Active Substance: DARATUMUMAB
     Dosage: 1600 MILLIGRAM
     Route: 042
     Dates: start: 20210106, end: 20210127
  13. DARZALEX [Suspect]
     Active Substance: DARATUMUMAB
     Route: 042
     Dates: start: 20210610, end: 20210708
  14. REVLIMID [Suspect]
     Active Substance: LENALIDOMIDE
     Indication: PLASMA CELL MYELOMA
     Dosage: 25 MILLIGRAM
     Route: 048
     Dates: start: 20201209, end: 20201222
  15. DEXAMETHASONE. [Suspect]
     Active Substance: DEXAMETHASONE
     Dosage: 20 MILLIGRAM
     Route: 048
     Dates: start: 20201216, end: 20201217
  16. KYPROLIS [Suspect]
     Active Substance: CARFILZOMIB
     Dosage: 78.8 MILLIGRAM
     Route: 042
     Dates: start: 20210106, end: 20210121
  17. DARZALEX [Suspect]
     Active Substance: DARATUMUMAB
     Dosage: 1552 MILLIGRAM
     Route: 042
     Dates: start: 20210416, end: 20210429
  18. REVLIMID [Suspect]
     Active Substance: LENALIDOMIDE
     Dosage: 25 MILLIGRAM
     Route: 048
     Dates: start: 20210416, end: 20210506
  19. KYPROLIS [Suspect]
     Active Substance: CARFILZOMIB
     Indication: PLASMA CELL MYELOMA
     Route: 042
     Dates: start: 20201209, end: 20201210
  20. DARZALEX [Suspect]
     Active Substance: DARATUMUMAB
     Route: 042
     Dates: start: 20201216, end: 20201216
  21. DARZALEX [Suspect]
     Active Substance: DARATUMUMAB
     Dosage: 1600 MILLIGRAM
     Route: 042
     Dates: start: 20210511, end: 20210527
  22. DOXORUBICINE [Concomitant]
     Active Substance: DOXORUBICIN
     Indication: PRODUCT USED FOR UNKNOWN INDICATION
     Route: 065
  23. CYCLOPHOSPHAMIDE. [Concomitant]
     Active Substance: CYCLOPHOSPHAMIDE
     Indication: PRODUCT USED FOR UNKNOWN INDICATION
     Route: 065
  24. REVLIMID [Suspect]
     Active Substance: LENALIDOMIDE
     Route: 048
     Dates: start: 20210610, end: 20210708
  25. DEXAMETHASONE. [Suspect]
     Active Substance: DEXAMETHASONE
     Dosage: 20 MILLIGRAM
     Route: 048
     Dates: start: 20210507, end: 20210528
  26. KYPROLIS [Suspect]
     Active Substance: CARFILZOMIB
     Route: 042
     Dates: start: 20201216, end: 20201217
  27. KYPROLIS [Suspect]
     Active Substance: CARFILZOMIB
     Dosage: 77.8 MILLIGRAM
     Route: 042
     Dates: start: 20210511, end: 20210512
  28. DEXAMETHASONE. [Suspect]
     Active Substance: DEXAMETHASONE
     Dosage: 20 MILLIGRAM
     Route: 048
     Dates: start: 20210106, end: 20210127
  29. DEXAMETHASONE. [Suspect]
     Active Substance: DEXAMETHASONE
     Dosage: 20 MILLIGRAM
     Route: 048
     Dates: start: 20210203, end: 20210218
  30. ETOPOSIDE. [Concomitant]
     Active Substance: ETOPOSIDE
     Indication: PRODUCT USED FOR UNKNOWN INDICATION
     Route: 065

REACTIONS (2)
  - Ascites [Not Recovered/Not Resolved]
  - Acute kidney injury [Not Recovered/Not Resolved]

NARRATIVE: CASE EVENT DATE: 20210707
